FAERS Safety Report 6089598-8 (Version None)
Quarter: 2009Q1

REPORT INFORMATION
  Report Type: 
  Country: None (occurrence: None)
  Receive Date: 20090224
  Receipt Date: 20090217
  Transmission Date: 20090719
  Serious: Yes (Other)
  Sender: FDA-Public Use
  Company Number: PHBS2009AU00862

PATIENT
  Age: 26 Year
  Sex: Female
  Weight: 53 kg

DRUGS (1)
  1. CARBAMAZEPINE [Suspect]
     Indication: COMPLEX PARTIAL SEIZURES
     Dosage: 400 MG, BID

REACTIONS (8)
  - CORTISOL FREE URINE INCREASED [None]
  - CUSHING'S SYNDROME [None]
  - FLUID OVERLOAD [None]
  - HIRSUTISM [None]
  - POLYDIPSIA [None]
  - POLYDIPSIA PSYCHOGENIC [None]
  - POLYURIA [None]
  - URINE OUTPUT INCREASED [None]
